FAERS Safety Report 15803728 (Version 5)
Quarter: 2021Q3

REPORT INFORMATION
  Report Type: Spontaneous
  Country: US (occurrence: US)
  Receive Date: 20190109
  Receipt Date: 20210712
  Transmission Date: 20211014
  Serious: Yes (Hospitalization)
  Sender: FDA-Public Use
  Company Number: US-PFIZER INC-2017274188

PATIENT
  Age: 87 Year
  Sex: Male
  Weight: 85.71 kg

DRUGS (31)
  1. B COMPLEX PLUS C [Concomitant]
     Dosage: 1 DF, 2X/DAY
     Route: 048
     Dates: start: 20170508
  2. LEVEMIR [Concomitant]
     Active Substance: INSULIN DETEMIR
     Indication: DIABETES MELLITUS
     Dosage: 10 IU, 1X/DAY (BEDTIME)
     Route: 058
     Dates: start: 20140312
  3. TERAZOSIN HCL [Concomitant]
     Active Substance: TERAZOSIN HYDROCHLORIDE
     Dosage: 5 MG, 1X/DAY (AT BEDTIME)
     Route: 048
     Dates: start: 20121211
  4. OMEPRAZOLE. [Concomitant]
     Active Substance: OMEPRAZOLE
     Indication: GASTROINTESTINAL HAEMORRHAGE
     Dosage: 20 MG, 1X/DAY (Q AM, BEFORE BKFST)
     Route: 048
     Dates: start: 20170220
  5. PRIMIDONE. [Concomitant]
     Active Substance: PRIMIDONE
     Dosage: 50 MG, DAILY
     Route: 048
     Dates: start: 20090202
  6. LYRICA [Suspect]
     Active Substance: PREGABALIN
     Dosage: 100 MG, 3X/DAY
     Route: 048
     Dates: start: 20171115
  7. AMITIZA [Concomitant]
     Active Substance: LUBIPROSTONE
     Dosage: 8 UG, 2X/DAY (BID)
     Route: 048
     Dates: start: 20170605
  8. LOSARTAN POTASSIUM. [Concomitant]
     Active Substance: LOSARTAN POTASSIUM
     Dosage: 50 MG, DAILY
     Route: 048
     Dates: start: 20121114
  9. METFORMIN HCL [Concomitant]
     Active Substance: METFORMIN HYDROCHLORIDE
     Indication: DIABETES MELLITUS
     Dosage: 500 MG, 2X/DAY
     Route: 048
     Dates: start: 20160621
  10. INSULIN [Concomitant]
     Active Substance: INSULIN NOS
     Dosage: 0.3 ML, 4X/DAY
     Dates: start: 20110706
  11. NITROSTAT [Concomitant]
     Active Substance: NITROGLYCERIN
     Indication: CHEST PAIN
     Dosage: 0.4 MG, AS NEEDED (EVERY 5 MINUTES FOR UP TO 3 DOSES)
     Route: 060
     Dates: start: 20140815
  12. RANITIDINE HCL [Concomitant]
     Active Substance: RANITIDINE HYDROCHLORIDE
     Dosage: 150 MG, 2X/DAY
     Route: 048
     Dates: start: 20100331
  13. LYRICA [Suspect]
     Active Substance: PREGABALIN
     Dosage: UNK
  14. ACETAMINOPHEN. [Concomitant]
     Active Substance: ACETAMINOPHEN
     Indication: PAIN
     Dosage: 500 MG, AS NEEDED (TAKE 2 IN THE MORNING AND 2 AT NIGHT)
     Route: 048
     Dates: start: 20150310
  15. PLAVIX [Concomitant]
     Active Substance: CLOPIDOGREL BISULFATE
     Dosage: UNK
     Dates: start: 20170220
  16. VITAMIN D [Concomitant]
     Active Substance: VITAMIN D NOS
     Dosage: 1000 IU, DAILY
     Route: 048
     Dates: start: 20170306
  17. MOMETASONE FUROATE. [Concomitant]
     Active Substance: MOMETASONE FUROATE
     Dosage: UNK, 2X/DAY (APPLY SPARINGLY TO AFFECTED AREA)
     Route: 061
     Dates: start: 20171018
  18. LYRICA [Suspect]
     Active Substance: PREGABALIN
     Dosage: 100 MG, 3X/DAY
     Route: 048
  19. ASPIRIN. [Concomitant]
     Active Substance: ASPIRIN
     Dosage: 81 MG, DAILY (AS DIRECTED)
     Route: 048
     Dates: start: 20170531
  20. CAPSAICIN. [Concomitant]
     Active Substance: CAPSAICIN
     Indication: PAIN
     Dosage: UNK, WEEKLY (MIX WITH 6 EQUAL PARTS WITH VASELINE, AND APPLY HS TO THE SITE OF PAIN, TAPER 1 PART V)
     Route: 061
     Dates: start: 20170508
  21. MIRALAX [Concomitant]
     Active Substance: POLYETHYLENE GLYCOL 3350
     Dosage: UNK, AS NEEDED (1 CAPFUL (17GM) IN 8 OUNCES OF WATER, JUICE, OR TEA AND DRINK DAILY)
     Dates: start: 20130311
  22. LYRICA [Suspect]
     Active Substance: PREGABALIN
     Indication: DIABETIC NEUROPATHY
     Dosage: 50 MG, 1X/DAY
     Route: 048
     Dates: start: 20170620
  23. ATORVASTATIN CALCIUM. [Concomitant]
     Active Substance: ATORVASTATIN CALCIUM
     Dosage: 20 MG, 1X/DAY (BEDTIME)
     Route: 048
     Dates: start: 19900101
  24. WARFARIN SODIUM. [Concomitant]
     Active Substance: WARFARIN SODIUM
     Dosage: UNK(TAKE 1.5 TABLET ON WEDNESDAYS AND SUNDAYS.  TAKE 1 TABLET ON THURSDAY, FRIDAY, SATURDAY, MONDAY)
     Route: 048
     Dates: start: 20170621
  25. ICY HOT [Concomitant]
     Active Substance: MENTHOL\METHYL SALICYLATE
     Dosage: UNK (AS DIRECTED ON PACKAGE)
     Dates: start: 20170508
  26. LACTULOSE. [Concomitant]
     Active Substance: LACTULOSE
     Dosage: 15 ML, 2X/DAY
     Route: 048
     Dates: start: 20170508
  27. TOVIAZ [Concomitant]
     Active Substance: FESOTERODINE FUMARATE
     Dosage: 4 MG, 1X/DAY (AT BEDTIME)
     Route: 048
  28. BETAMETHASONE/CLOTRIMAZOLE [Concomitant]
     Active Substance: BETAMETHASONE DIPROPIONATE\CLOTRIMAZOLE
     Dosage: UNK, 2X/DAY (APPLY AND RUB IN A THIN FILM TO AFFECTED AREAS TWICE DAILY (AM AND PM))
     Route: 061
     Dates: start: 20160511
  29. DOCQLACE [Concomitant]
     Active Substance: DOCUSATE SODIUM
     Dosage: 100 MG, AS NEEDED (3?4 X DAILY)
     Route: 048
     Dates: start: 20160608
  30. HYDROCHLOROTHIAZIDE. [Concomitant]
     Active Substance: HYDROCHLOROTHIAZIDE
     Dosage: 25 MG, DAILY
     Route: 048
     Dates: start: 20170605
  31. MELATONIN [Concomitant]
     Active Substance: MELATONIN
     Indication: SLEEP DISORDER
     Dosage: 5 MG, AS NEEDED (QHS)
     Route: 060
     Dates: start: 20170508

REACTIONS (2)
  - Pneumonia [Unknown]
  - Cardiac failure congestive [Unknown]
